FAERS Safety Report 18859386 (Version 3)
Quarter: 2021Q1

REPORT INFORMATION
  Report Type: Spontaneous
  Country: US (occurrence: US)
  Receive Date: 20210208
  Receipt Date: 20210317
  Transmission Date: 20210420
  Serious: Yes (Other)
  Sender: FDA-Public Use
  Company Number: US-GLAXOSMITHKLINE-US2021GSK031467

PATIENT
  Sex: Female

DRUGS (7)
  1. RANITIDINE. [Suspect]
     Active Substance: RANITIDINE
     Indication: DYSPEPSIA
     Dosage: UNKNOWN AT THIS TIME BOTH, 4 TIMES PER WEEK
     Route: 065
     Dates: start: 201101, end: 201512
  2. RANITIDINE. [Suspect]
     Active Substance: RANITIDINE
     Indication: DYSPEPSIA
     Dosage: UNKNOWN AT THIS TIME BOTH, 4 TIMES PER WEEK
     Route: 065
     Dates: start: 201101, end: 201512
  3. RANITIDINE. [Suspect]
     Active Substance: RANITIDINE
     Indication: DYSPEPSIA
     Dosage: UNKNOWN AT THIS TIME BOTH, 4 TIMES PER WEEK
     Route: 065
     Dates: start: 201101, end: 201512
  4. ZANTAC [Suspect]
     Active Substance: RANITIDINE HYDROCHLORIDE
     Indication: DYSPEPSIA
     Dosage: 150 MG, 4 TIMES PER WEEK
     Route: 065
     Dates: start: 201101, end: 201512
  5. ZANTAC [Suspect]
     Active Substance: RANITIDINE HYDROCHLORIDE
     Indication: DYSPEPSIA
     Dosage: 150 MG, 4 TIMES PER WEEK
     Route: 065
     Dates: start: 201101, end: 201512
  6. RANITIDINE CAPSULE [Suspect]
     Active Substance: RANITIDINE
     Indication: DYSPEPSIA
     Dosage: UNKNOWN AT THIS TIME BOTH, 4 TIMES PER WEEK
     Route: 065
     Dates: start: 201101, end: 201512
  7. ZANTAC [Suspect]
     Active Substance: RANITIDINE HYDROCHLORIDE
     Indication: DYSPEPSIA
     Dosage: 150 MG, 4 TIMES PER WEEK
     Route: 065
     Dates: start: 201101, end: 201512

REACTIONS (1)
  - Colorectal cancer [Unknown]
